FAERS Safety Report 9932061 (Version 1)
Quarter: 2014Q1

REPORT INFORMATION
  Report Type: Report from Study
  Country: US (occurrence: US)
  Receive Date: 20140228
  Receipt Date: 20140228
  Transmission Date: 20141002
  Serious: No
  Sender: FDA-Public Use
  Company Number: US-ABBVIE-13P-163-1088736-00

PATIENT
  Sex: Male

DRUGS (4)
  1. ANDROGEL [Suspect]
     Indication: BLOOD TESTOSTERONE DECREASED
  2. DEA-25 [Suspect]
     Indication: BLOOD TESTOSTERONE DECREASED
  3. VIAGRA [Concomitant]
     Indication: ERECTILE DYSFUNCTION
  4. CIALIS [Concomitant]
     Indication: ERECTILE DYSFUNCTION

REACTIONS (4)
  - Erectile dysfunction [Unknown]
  - Drug ineffective [Unknown]
  - Dry skin [Unknown]
  - Pruritus [Unknown]
